FAERS Safety Report 6566767-1 (Version None)
Quarter: 2010Q1

REPORT INFORMATION
  Report Type: 
  Country: None (occurrence: None)
  Receive Date: 20100202
  Receipt Date: 20100120
  Transmission Date: 20100710
  Serious: Yes (Other)
  Sender: FDA-Public Use
  Company Number: JP-PFIZER INC-2010011751

PATIENT
  Age: 67 Year
  Sex: Female

DRUGS (2)
  1. CABERGOLINE [Suspect]
     Indication: PARKINSON'S DISEASE
     Dosage: UNK
     Route: 048
     Dates: start: 20070901
  2. CABERGOLINE [Suspect]
     Dosage: 3 MG, UNK
     Dates: start: 20080101

REACTIONS (8)
  - CARDIAC FAILURE [None]
  - CARDIAC VALVE DISEASE [None]
  - CARDIOMEGALY [None]
  - MITRAL VALVE INCOMPETENCE [None]
  - OEDEMA [None]
  - PLEURAL EFFUSION [None]
  - PULMONARY CONGESTION [None]
  - WEIGHT INCREASED [None]
